FAERS Safety Report 6880973-8 (Version None)
Quarter: 2010Q2

REPORT INFORMATION
  Report Type: 
  Country: None (occurrence: None)
  Receive Date: 20100630
  Receipt Date: 20100401
  Transmission Date: 20101027
  Serious: Yes (Other)
  Sender: FDA-Public Use
  Company Number: 2010042547

PATIENT
  Age: 12 Month
  Sex: Female
  Weight: 9 kg

DRUGS (1)
  1. AZITHROMYCIN [Suspect]
     Indication: LOWER RESPIRATORY TRACT INFECTION
     Dosage: HALF A TEASPOON ONCE DAY, ORAL
     Route: 048
     Dates: start: 20100317, end: 20100321

REACTIONS (1)
  - URTICARIA [None]
